FAERS Safety Report 6716070-1 (Version None)
Quarter: 2010Q2

REPORT INFORMATION
  Report Type: 
  Country: None (occurrence: None)
  Receive Date: 20100507
  Receipt Date: 20100503
  Transmission Date: 20101027
  Serious: Yes (Hospitalization)
  Sender: FDA-Public Use
  Company Number: A0857699A

PATIENT
  Age: 69 Year
  Sex: Male

DRUGS (4)
  1. ADVAIR DISKUS 100/50 [Suspect]
     Indication: ASTHMA
     Route: 055
     Dates: start: 20040101
  2. SINGULAIR [Concomitant]
  3. SPIRIVA [Concomitant]
  4. REPAGLINIDE [Concomitant]

REACTIONS (6)
  - ASTHMA [None]
  - CHILLS [None]
  - LUNG INFECTION [None]
  - PYREXIA [None]
  - RESPIRATORY DISORDER [None]
  - RESPIRATORY TRACT INFECTION [None]
